FAERS Safety Report 7372676-0 (Version None)
Quarter: 2011Q1

REPORT INFORMATION
  Report Type: 
  Country: None (occurrence: None)
  Receive Date: 20110324
  Receipt Date: 20110315
  Transmission Date: 20110831
  Serious: Yes (Hospitalization, Other)
  Sender: FDA-Public Use
  Company Number: US-ASTRAZENECA-2010SE54942

PATIENT
  Age: 58 Year
  Sex: Male
  Weight: 81.6 kg

DRUGS (10)
  1. COREG [Concomitant]
  2. SEROQUEL [Suspect]
     Dosage: AT NIGHT
     Route: 048
  3. PROZAC [Concomitant]
  4. HYDROCHLOROTHIAZIDE [Concomitant]
  5. DEPAKOTE [Concomitant]
  6. SEROQUEL [Suspect]
     Route: 048
     Dates: start: 20090101
  7. SEROQUEL [Suspect]
     Indication: SCHIZOAFFECTIVE DISORDER BIPOLAR TYPE
     Route: 048
     Dates: end: 20090101
  8. SEROQUEL [Suspect]
     Dosage: BEFORE MEALS
     Route: 048
  9. LITHIUM [Suspect]
     Route: 065
  10. AZOR [Concomitant]

REACTIONS (9)
  - TRANSIENT ISCHAEMIC ATTACK [None]
  - DEHYDRATION [None]
  - TOXICITY TO VARIOUS AGENTS [None]
  - INAPPROPRIATE SCHEDULE OF DRUG ADMINISTRATION [None]
  - CEREBROVASCULAR ACCIDENT [None]
  - HEMIPLEGIA [None]
  - INFLUENZA [None]
  - MEMORY IMPAIRMENT [None]
  - BLOOD PRESSURE INADEQUATELY CONTROLLED [None]
